FAERS Safety Report 5383995-1 (Version None)
Quarter: 2007Q3

REPORT INFORMATION
  Report Type: 
  Country: None (occurrence: None)
  Receive Date: 20070711
  Receipt Date: 20070702
  Transmission Date: 20080115
  Serious: Yes (Other)
  Sender: FDA-Public Use
  Company Number: US-JNJFOC-20070700883

PATIENT
  Sex: Female

DRUGS (1)
  1. ULTRAM ER [Suspect]
     Indication: MUSCULOSKELETAL PAIN
     Dosage: ONCE
     Route: 048

REACTIONS (2)
  - HEADACHE [None]
  - PHOTOPHOBIA [None]
